FAERS Safety Report 11893896 (Version 1)
Quarter: 2016Q1

REPORT INFORMATION
  Report Type: Spontaneous
  Country: US (occurrence: US)
  Receive Date: 20160107
  Receipt Date: 20160107
  Transmission Date: 20160526
  Serious: Yes (Hospitalization, Other)
  Sender: FDA-Public Use
  Company Number: US-PAR PHARMACEUTICAL COMPANIES-2016SCPR015058

PATIENT

DRUGS (1)
  1. IBUPROFEN. [Suspect]
     Active Substance: IBUPROFEN
     Indication: PRODUCT USED FOR UNKNOWN INDICATION
     Dosage: 600 DF, UNKNOWN
     Route: 048

REACTIONS (7)
  - Acute kidney injury [Unknown]
  - Heart rate increased [Recovering/Resolving]
  - Unresponsive to stimuli [Unknown]
  - Intentional overdose [Unknown]
  - Hypotension [Recovering/Resolving]
  - Acidosis [Unknown]
  - Gastrointestinal haemorrhage [Unknown]
